FAERS Safety Report 25356641 (Version 1)
Quarter: 2025Q2

REPORT INFORMATION
  Report Type: Spontaneous
  Country: US (occurrence: US)
  Receive Date: 20250526
  Receipt Date: 20250526
  Transmission Date: 20250717
  Serious: No
  Sender: ROCHE
  Company Number: US-ROCHE-10000290878

PATIENT
  Sex: Female

DRUGS (1)
  1. ACTEMRA [Suspect]
     Active Substance: TOCILIZUMAB
     Indication: Rheumatoid arthritis
     Dosage: (STRENGTH REPORTED AS: 162MG/0.9M)
     Route: 058
     Dates: start: 202504

REACTIONS (2)
  - Myalgia [Unknown]
  - Fatigue [Unknown]
